FAERS Safety Report 6841810-0 (Version None)
Quarter: 2010Q3

REPORT INFORMATION
  Report Type: 
  Country: None (occurrence: None)
  Receive Date: 20100714
  Receipt Date: 20070717
  Transmission Date: 20110219
  Serious: No
  Sender: FDA-Public Use
  Company Number: US-PFIZER INC-2007060248

PATIENT
  Sex: Male
  Weight: 85.9 kg

DRUGS (3)
  1. CHANTIX [Suspect]
     Indication: SMOKING CESSATION THERAPY
     Dates: start: 20070701
  2. SYNTHROID [Concomitant]
  3. NAPROXEN [Concomitant]

REACTIONS (2)
  - ANGER [None]
  - NAUSEA [None]
